FAERS Safety Report 10694697 (Version 5)
Quarter: 2015Q4

REPORT INFORMATION
  Report Type: Spontaneous
  Country: US (occurrence: US)
  Receive Date: 20150107
  Receipt Date: 20151015
  Transmission Date: 20160304
  Serious: Yes (Hospitalization)
  Sender: FDA-Public Use
  Company Number: US-BAYER-2015-001491

PATIENT
  Age: 25 Year
  Sex: Female
  Weight: 93 kg

DRUGS (1)
  1. MIRENA [Suspect]
     Active Substance: LEVONORGESTREL
     Indication: CONTRACEPTION
     Dosage: 20 MCG/24HR, CONT
     Route: 015
     Dates: start: 20040109, end: 20090131

REACTIONS (11)
  - Uterine infection [None]
  - Depression [None]
  - Psychological trauma [None]
  - Uterine haemorrhage [None]
  - Injury [None]
  - Emotional distress [None]
  - Genital discharge [None]
  - Anxiety [None]
  - Embedded device [None]
  - Pain [None]
  - Device issue [None]

NARRATIVE: CASE EVENT DATE: 200401
